FAERS Safety Report 25412954 (Version 1)
Quarter: 2025Q2

REPORT INFORMATION
  Report Type: Spontaneous
  Country: US (occurrence: US)
  Receive Date: 20250609
  Receipt Date: 20250609
  Transmission Date: 20250716
  Serious: No
  Sender: KINIKSA PHARMACEUTICALS
  Company Number: US-KINIKSA PHARMACEUTICALS LTD.-2025KPU001406

PATIENT
  Age: 43 Year
  Sex: Male

DRUGS (5)
  1. ARCALYST [Suspect]
     Active Substance: RILONACEPT
     Indication: Pericarditis
     Route: 058
     Dates: start: 202505, end: 202505
  2. ARCALYST [Suspect]
     Active Substance: RILONACEPT
     Dosage: 160 MILLIGRAM, QW
     Route: 058
     Dates: start: 202505
  3. FISH OIL [Concomitant]
     Active Substance: FISH OIL
     Indication: Product used for unknown indication
  4. ZINC [Concomitant]
     Active Substance: ZINC
     Indication: Product used for unknown indication
  5. MAGNESIUM [Concomitant]
     Active Substance: MAGNESIUM
     Indication: Product used for unknown indication

REACTIONS (4)
  - Pain in extremity [Unknown]
  - Skin reaction [Unknown]
  - Injection site erythema [Unknown]
  - Injection site pruritus [Unknown]

NARRATIVE: CASE EVENT DATE: 20250512
